FAERS Safety Report 8980105 (Version 2)
Quarter: 2013Q2

REPORT INFORMATION
  Report Type: Spontaneous
  Country: US (occurrence: US)
  Receive Date: 20121221
  Receipt Date: 20130626
  Transmission Date: 20140414
  Serious: Yes (Other)
  Sender: FDA-Public Use
  Company Number: CHPA2012US025398

PATIENT
  Age: 7 Year
  Sex: Male

DRUGS (2)
  1. TRIAMINIC DAY TIME COLD + COUGH [Suspect]
     Indication: COUGH
     Dosage: 2 TSP, ONCE/SINGLE
     Route: 048
     Dates: start: 20121211, end: 20121211
  2. STRATTERA [Concomitant]
     Indication: ATTENTION DEFICIT/HYPERACTIVITY DISORDER
     Dosage: UNK, UNK
     Route: 048

REACTIONS (2)
  - Blood glucose increased [Recovered/Resolved]
  - Concomitant disease aggravated [Recovered/Resolved]
